FAERS Safety Report 4749552-2 (Version None)
Quarter: 2005Q3

REPORT INFORMATION
  Report Type: 
  Country: None (occurrence: None)
  Receive Date: 20050819
  Receipt Date: 20050819
  Transmission Date: 20060218
  Serious: Yes (Hospitalization)
  Sender: FDA-Public Use
  Company Number: None

PATIENT
  Age: 50 Year
  Sex: Male
  Weight: 80 kg

DRUGS (9)
  1. LOVENOX [Suspect]
     Indication: ANGINA UNSTABLE
     Dosage: 80MG SUBCUT Q 12 H
     Route: 058
     Dates: start: 20050713, end: 20050718
  2. COUMADIN [Concomitant]
  3. TYLENOL [Concomitant]
  4. REGLAN [Concomitant]
  5. CARDIZEM [Concomitant]
  6. LOPRESSOR [Concomitant]
  7. COZAAR [Concomitant]
  8. ALBUTEROL [Concomitant]
  9. ARTIFICIAL TEARS [Concomitant]

REACTIONS (2)
  - ECCHYMOSIS [None]
  - INDURATION [None]
